FAERS Safety Report 8177019-0 (Version None)
Quarter: 2012Q1

REPORT INFORMATION
  Report Type: 
  Country: None (occurrence: None)
  Receive Date: 20120301
  Receipt Date: 20120223
  Transmission Date: 20120608
  Serious: Yes (Hospitalization)
  Sender: FDA-Public Use
  Company Number: US-ABBOTT-12P-163-0907678-00

PATIENT
  Sex: Female
  Weight: 172.52 kg

DRUGS (6)
  1. PREDNISONE [Concomitant]
     Indication: SCLERITIS
     Dates: start: 20100101
  2. HUMIRA [Suspect]
     Indication: SCLERITIS
     Route: 058
     Dates: start: 20111001, end: 20111201
  3. METHOTREXATE [Concomitant]
     Indication: RHEUMATOID ARTHRITIS
  4. PREDNISONE [Concomitant]
     Indication: RHEUMATOID ARTHRITIS
  5. METHOTREXATE [Concomitant]
     Indication: SCLERITIS
     Dates: start: 20110101
  6. HUMIRA [Suspect]
     Indication: RHEUMATOID ARTHRITIS
     Route: 058
     Dates: start: 20111201

REACTIONS (6)
  - OFF LABEL USE [None]
  - JOINT SWELLING [None]
  - DRUG INEFFECTIVE [None]
  - OEDEMA PERIPHERAL [None]
  - FLUID RETENTION [None]
  - SCLERITIS [None]
